FAERS Safety Report 6735514-2 (Version None)
Quarter: 2010Q2

REPORT INFORMATION
  Report Type: 
  Country: None (occurrence: None)
  Receive Date: 20100519
  Receipt Date: 20100507
  Transmission Date: 20101027
  Serious: Yes (Death)
  Sender: FDA-Public Use
  Company Number: 009123

PATIENT
  Sex: Male

DRUGS (4)
  1. KEPPRA [Suspect]
     Indication: EPILEPSY
     Dosage: (250 MG BID ORAL)
     Route: 048
     Dates: start: 20080318, end: 20080401
  2. GABAPENTIN [Concomitant]
  3. BACLOFEN [Concomitant]
  4. ASASANTIN /00580301/ [Concomitant]

REACTIONS (6)
  - ASPHYXIA [None]
  - COMPLETED SUICIDE [None]
  - NOSE DEFORMITY [None]
  - STRESS [None]
  - THROMBOSIS [None]
  - VICTIM OF HOMICIDE [None]
